FAERS Safety Report 11272624 (Version 1)
Quarter: 2015Q3

REPORT INFORMATION
  Report Type: Spontaneous
  Country: US (occurrence: US)
  Receive Date: 20150715
  Receipt Date: 20150715
  Transmission Date: 20151125
  Serious: Yes (Hospitalization)
  Sender: FDA-Public Use
  Company Number: US-JNJFOC-20150706458

PATIENT
  Age: 60 Year
  Sex: Male
  Weight: 89.36 kg

DRUGS (1)
  1. XARELTO [Suspect]
     Active Substance: RIVAROXABAN
     Indication: DEEP VEIN THROMBOSIS
     Route: 048
     Dates: start: 20150520, end: 201506

REACTIONS (2)
  - Gastrointestinal haemorrhage [Unknown]
  - Large intestinal polypectomy [Unknown]

NARRATIVE: CASE EVENT DATE: 201506
